FAERS Safety Report 7809292-X (Version None)
Quarter: 2011Q4

REPORT INFORMATION
  Report Type: 
  Country: None (occurrence: None)
  Receive Date: 20111006
  Receipt Date: 20110926
  Transmission Date: 20120403
  Serious: Yes (Hospitalization, Other)
  Sender: FDA-Public Use
  Company Number: 2009SP040697

PATIENT
  Age: 45 Year
  Sex: Female
  Weight: 86.1834 kg

DRUGS (3)
  1. NUVARING [Suspect]
     Indication: MENSTRUAL DISORDER
     Dates: start: 20071018, end: 20071201
  2. CALCIUM CARBONATE [Concomitant]
  3. MULTI-VITAMIN [Concomitant]

REACTIONS (15)
  - PNEUMOTHORAX [None]
  - PNEUMONIA [None]
  - PLEURAL EFFUSION [None]
  - HYPERCOAGULATION [None]
  - PULMONARY EMBOLISM [None]
  - PULMONARY INFARCTION [None]
  - MENORRHAGIA [None]
  - ANTIPHOSPHOLIPID SYNDROME [None]
  - ANAEMIA [None]
  - HEPATIC CYST [None]
  - HAEMANGIOMA OF LIVER [None]
  - UTERINE POLYP [None]
  - DYSFUNCTIONAL UTERINE BLEEDING [None]
  - INTERNATIONAL NORMALISED RATIO INCREASED [None]
  - ATELECTASIS [None]
